FAERS Safety Report 15220594 (Version 2)
Quarter: 2018Q3

REPORT INFORMATION
  Report Type: Spontaneous
  Country: SG (occurrence: SG)
  Receive Date: 20180731
  Receipt Date: 20180831
  Transmission Date: 20181010
  Serious: Yes (Other)
  Sender: FDA-Public Use
  Company Number: SG-INCYTE CORPORATION-2018IN007540

PATIENT

DRUGS (1)
  1. JAKAVI [Suspect]
     Active Substance: RUXOLITINIB
     Indication: PRIMARY MYELOFIBROSIS
     Dosage: UNK
     Route: 065
     Dates: start: 20180508

REACTIONS (5)
  - Back pain [Unknown]
  - Cytopenia [Unknown]
  - Bone pain [Unknown]
  - Primary myelofibrosis [Unknown]
  - Splenomegaly [Unknown]
